FAERS Safety Report 6479518-6 (Version None)
Quarter: 2009Q4

REPORT INFORMATION
  Report Type: 
  Country: None (occurrence: None)
  Receive Date: 20091207
  Receipt Date: 20091207
  Transmission Date: 20100525
  Serious: Yes (Life-Threatening)
  Sender: FDA-Public Use
  Company Number: None

PATIENT
  Age: 57 Year
  Sex: Male
  Weight: 63.5036 kg

DRUGS (1)
  1. DEPODUR [Suspect]
     Dosage: 10 MG ONCE INTRA

REACTIONS (1)
  - RESPIRATORY ARREST [None]
